FAERS Safety Report 11505436 (Version 1)
Quarter: 2015Q3

REPORT INFORMATION
  Report Type: Spontaneous
  Country: US (occurrence: US)
  Receive Date: 20150915
  Receipt Date: 20150915
  Transmission Date: 20151125
  Serious: No
  Sender: FDA-Public Use
  Company Number: US-ROCHE-759662

PATIENT
  Age: 68 Year
  Sex: Male

DRUGS (2)
  1. RIBASPHERE [Suspect]
     Active Substance: RIBAVIRIN
     Indication: HEPATITIS C
     Dosage: DIVIDED DOSES
     Route: 048
  2. PEGASYS [Suspect]
     Active Substance: PEGINTERFERON ALFA-2A
     Indication: HEPATITIS C
     Dosage: FORM: PRE-FILLED SYRINGE
     Route: 058

REACTIONS (9)
  - Cough [Unknown]
  - Memory impairment [Unknown]
  - Throat irritation [Unknown]
  - Pain [Unknown]
  - Fatigue [Unknown]
  - Influenza like illness [Unknown]
  - Dizziness [Unknown]
  - Chills [Unknown]
  - Pruritus [Unknown]

NARRATIVE: CASE EVENT DATE: 20110204
